FAERS Safety Report 11724954 (Version 2)
Quarter: 2016Q1

REPORT INFORMATION
  Report Type: Spontaneous
  Country: US (occurrence: US)
  Receive Date: 20151111
  Receipt Date: 20160202
  Transmission Date: 20160525
  Serious: No
  Sender: FDA-Public Use
  Company Number: US-UCBSA-2014008591

PATIENT
  Age: 54 Year
  Sex: Female
  Weight: 56.69 kg

DRUGS (6)
  1. KEPPRA [Suspect]
     Active Substance: LEVETIRACETAM
     Indication: CONVULSION PROPHYLAXIS
     Dosage: 750 MG, 3.5 TIMES A DAY, 2 DAY NOT TAKEN
     Dates: start: 201001
  2. KEPPRA [Suspect]
     Active Substance: LEVETIRACETAM
     Dosage: ONE DAY 750MG IN AM AND 1500MG AT NIGHT. OTHER DAY 1500 MG BID. ALTERNATE DOSAGES EVERY OTHER DAY
     Route: 048
     Dates: start: 201001
  3. LISINOPRIL. [Concomitant]
     Active Substance: LISINOPRIL
     Indication: HYPERTENSION
     Dosage: 20 MG, ONCE DAILY (QD)
     Route: 048
  4. KEPPRA [Suspect]
     Active Substance: LEVETIRACETAM
     Dosage: 750 MG, 2X/DAY (BID)
  5. VIMPAT [Suspect]
     Active Substance: LACOSAMIDE
     Indication: SEIZURE
     Dosage: 100 MG, 2X/DAY (BID)
     Route: 048
     Dates: start: 201001
  6. PAXIL [Concomitant]
     Active Substance: PAROXETINE HYDROCHLORIDE
     Indication: OBSESSIVE-COMPULSIVE DISORDER
     Dosage: 20 MG, ONCE DAILY (QD)
     Route: 048

REACTIONS (6)
  - Drug dose omission [Unknown]
  - Anxiety [Recovered/Resolved]
  - Seizure [Not Recovered/Not Resolved]
  - Expired product administered [Unknown]
  - Subarachnoid haemorrhage [Unknown]
  - Impaired work ability [Unknown]

NARRATIVE: CASE EVENT DATE: 2010
